FAERS Safety Report 8943747 (Version 1)
Quarter: 2012Q4

REPORT INFORMATION
  Report Type: 
  Country: US (occurrence: US)
  Receive Date: 20121203
  Receipt Date: 20121203
  Transmission Date: 20130627
  Serious: Yes (Other)
  Sender: FDA-Public Use
  Company Number: US-GLAXOSMITHKLINE-A1003084A

PATIENT
  Age: 84 Year
  Sex: Female

DRUGS (4)
  1. ADVAIR [Suspect]
     Indication: ASTHMA
     Route: 065
     Dates: start: 2003, end: 20121031
  2. ADVAIR [Suspect]
     Indication: ASTHMA
     Route: 065
  3. SYMBICORT [Concomitant]
  4. VENTOLIN [Concomitant]

REACTIONS (10)
  - Dermatitis bullous [Unknown]
  - Contusion [Unknown]
  - Biopsy skin [Unknown]
  - Stomatitis [Unknown]
  - Pruritus [Unknown]
  - Rash [Unknown]
  - Oral pain [Unknown]
  - Eczema [Unknown]
  - Underdose [Unknown]
  - Off label use [Unknown]
